FAERS Safety Report 18241434 (Version 1)
Quarter: 2020Q3

REPORT INFORMATION
  Report Type: Spontaneous
  Country: US (occurrence: US)
  Receive Date: 20200908
  Receipt Date: 20200908
  Transmission Date: 20201103
  Serious: Yes (Other)
  Sender: FDA-Public Use
  Company Number: US-PROCTER_AND_GAMBLE-GS20090103

PATIENT
  Age: 59 Year
  Sex: Male
  Weight: 86.17 kg

DRUGS (8)
  1. PRESERVISION [Concomitant]
     Active Substance: MINERALS\VITAMINS
     Indication: EYE DISORDER
     Dosage: UNK, 1 /DAY
  2. I?THROID [Concomitant]
     Dosage: 6.25 MILLIGRAM
  3. AMLODIPINE [Concomitant]
     Active Substance: AMLODIPINE BESYLATE
     Indication: HYPERTENSION
     Dosage: 5 MILLIGRAM
  4. BAYER LOW DOSE [Concomitant]
     Active Substance: ASPIRIN
     Dosage: 81 MILLIGRAM
  5. CREST PRO?HEALTH MULTI?PROTECTION REFRESHING CLEAN MINT [Suspect]
     Active Substance: CETYLPYRIDINIUM CHLORIDE
     Dosage: UNK
     Route: 002
     Dates: start: 2019, end: 2019
  6. CREST PRO?HEALTH MULTI?PROTECTION REFRESHING CLEAN MINT [Suspect]
     Active Substance: CETYLPYRIDINIUM CHLORIDE
     Indication: BREATH ODOUR
     Dosage: 1 OUNCE, 1 /DAY
     Route: 002
     Dates: start: 20200330, end: 20200722
  7. ATENOLOL. [Concomitant]
     Active Substance: ATENOLOL
     Indication: HYPERTENSION
     Dosage: 25 MILLIGRAM
  8. CREST TOOTHPASTE COMPLETE [Concomitant]
     Route: 002

REACTIONS (3)
  - Oral disorder [Unknown]
  - Lymphadenopathy [Recovered/Resolved]
  - Pharyngeal disorder [Unknown]

NARRATIVE: CASE EVENT DATE: 2019
